FAERS Safety Report 9241460 (Version 1)
Quarter: 2013Q1

REPORT INFORMATION
  Report Type: Spontaneous
  Country: US (occurrence: None)
  Receive Date: 20121120
  Receipt Date: 20121120
  Transmission Date: 20140127
  Serious: No
  Sender: FDA-Public Use
  Company Number: 1000038135

PATIENT
  Age: 58 Year
  Sex: Female

DRUGS (2)
  1. VIIBRYD [Suspect]
     Indication: DEPRESSION
     Dosage: 1 IN 1 D
     Route: 048
     Dates: start: 20120801, end: 20120807
  2. MULTIVITAMINS [Concomitant]

REACTIONS (10)
  - Urticaria [None]
  - Feeling abnormal [None]
  - Dizziness [None]
  - Anxiety [None]
  - Decreased appetite [None]
  - Abdominal pain upper [None]
  - Abdominal discomfort [None]
  - Pallor [None]
  - Lid sulcus deepened [None]
  - Insomnia [None]
